FAERS Safety Report 9855526 (Version 1)
Quarter: 2014Q1

REPORT INFORMATION
  Report Type: Spontaneous
  Country: US (occurrence: None)
  Receive Date: 20140129
  Receipt Date: 20140129
  Transmission Date: 20141002
  Serious: Yes (Other)
  Sender: FDA-Public Use
  Company Number: None

PATIENT
  Age: 50 Year
  Sex: Female
  Weight: 95.26 kg

DRUGS (4)
  1. FLUOCINILONE ACTONIDE [Suspect]
     Dates: start: 20130910, end: 20131202
  2. FLUOCINILONE ACTONIDE [Suspect]
     Dates: start: 20130910, end: 20131202
  3. CLOBETASOL [Suspect]
  4. CLOBETASOL [Suspect]

REACTIONS (1)
  - No therapeutic response [None]
